FAERS Safety Report 9199504 (Version 1)
Quarter: 2013Q1

REPORT INFORMATION
  Report Type: Spontaneous
  Country: FR (occurrence: FR)
  Receive Date: 20130329
  Receipt Date: 20130329
  Transmission Date: 20140127
  Serious: Yes (Other)
  Sender: FDA-Public Use
  Company Number: FR-B.I. PHARMACEUTICALS,INC./RIDGEFIELD-2013-FF-00800FF

PATIENT
  Age: 88 Year
  Sex: Male

DRUGS (1)
  1. PRADAXA [Suspect]
     Dosage: 110 MG
     Route: 048
     Dates: start: 20120712, end: 20121217

REACTIONS (2)
  - Gastrointestinal haemorrhage [Recovered/Resolved]
  - Condition aggravated [Recovered/Resolved]
